FAERS Safety Report 14473388 (Version 2)
Quarter: 2018Q2

REPORT INFORMATION
  Report Type: Spontaneous
  Country: US (occurrence: US)
  Receive Date: 20180201
  Receipt Date: 20180410
  Transmission Date: 20180711
  Serious: Yes (Hospitalization, Other)
  Sender: FDA-Public Use
  Company Number: US-BEH-2018087254

PATIENT
  Age: 48 Year
  Sex: Female
  Weight: 126.98 kg

DRUGS (17)
  1. BERINERT [Suspect]
     Active Substance: HUMAN C1-ESTERASE INHIBITOR
     Indication: HEREDITARY ANGIOEDEMA
     Dosage: 1000 UNK, UNK
     Route: 042
     Dates: start: 20161107
  2. VITAMIN D3 [Concomitant]
     Active Substance: CHOLECALCIFEROL
  3. STERILE WATER [Concomitant]
     Active Substance: WATER
  4. BERINERT [Suspect]
     Active Substance: HUMAN C1-ESTERASE INHIBITOR
     Dosage: UNK
     Route: 042
  5. HYDROXYZINE [Concomitant]
     Active Substance: HYDROXYZINE HYDROCHLORIDE
  6. FIRAZYR [Concomitant]
     Active Substance: ICATIBANT ACETATE
  7. SODIUM CHLORIDE. [Concomitant]
     Active Substance: SODIUM CHLORIDE
  8. KALBITOR [Concomitant]
     Active Substance: ECALLANTIDE
  9. BERINERT [Suspect]
     Active Substance: HUMAN C1-ESTERASE INHIBITOR
     Indication: PROPHYLAXIS
     Dosage: 1000 IU, TIW
     Route: 042
     Dates: start: 20171010
  10. RANITIDINE. [Concomitant]
     Active Substance: RANITIDINE
  11. PREDNISONE. [Concomitant]
     Active Substance: PREDNISONE
  12. KALBITOR [Concomitant]
     Active Substance: ECALLANTIDE
  13. SYMBICORT [Concomitant]
     Active Substance: BUDESONIDE\FORMOTEROL FUMARATE DIHYDRATE
  14. IRON [Concomitant]
     Active Substance: IRON
  15. FEXOFENADINE [Concomitant]
     Active Substance: FEXOFENADINE\FEXOFENADINE HYDROCHLORIDE
  16. CINRYZE [Concomitant]
     Active Substance: HUMAN C1-ESTERASE INHIBITOR
  17. DIPHENHYDRAMINE. [Concomitant]
     Active Substance: DIPHENHYDRAMINE

REACTIONS (1)
  - Hereditary angioedema [Not Recovered/Not Resolved]

NARRATIVE: CASE EVENT DATE: 20180115
